FAERS Safety Report 6216149-7 (Version None)
Quarter: 2009Q2

REPORT INFORMATION
  Report Type: 
  Country: None (occurrence: None)
  Receive Date: 20090603
  Receipt Date: 20090603
  Transmission Date: 20091009
  Serious: Yes (Other)
  Sender: FDA-Public Use
  Company Number: None

PATIENT
  Age: 56 Year
  Sex: Female
  Weight: 80.2867 kg

DRUGS (4)
  1. TOPAMAX [Suspect]
     Indication: NEUROPATHY PERIPHERAL
     Dosage: 1 BID PO
     Route: 048
     Dates: start: 20090222, end: 20090313
  2. PHENDIMETRAZINE [Concomitant]
  3. THYROID TAB [Concomitant]
  4. ACYCLOVIR [Concomitant]

REACTIONS (1)
  - ANGLE CLOSURE GLAUCOMA [None]
